FAERS Safety Report 12328239 (Version 5)
Quarter: 2016Q2

REPORT INFORMATION
  Report Type: Report from Study
  Country: US (occurrence: US)
  Receive Date: 20160503
  Receipt Date: 20160527
  Transmission Date: 20160815
  Serious: Yes (Death, Hospitalization, Other)
  Sender: FDA-Public Use
  Company Number: US-ACTELION-A-US2016-135143

PATIENT
  Age: 77 Year
  Sex: Female

DRUGS (4)
  1. MACITENTAN [Suspect]
     Active Substance: MACITENTAN
     Indication: PULMONARY ARTERIAL HYPERTENSION
     Dosage: 10 MG, QD
     Route: 048
     Dates: start: 20160426, end: 20160515
  2. WARFARIN [Concomitant]
     Active Substance: WARFARIN
  3. TYVASO [Concomitant]
     Active Substance: TREPROSTINIL
  4. RIOCIGUAT [Concomitant]
     Active Substance: RIOCIGUAT

REACTIONS (7)
  - Disease progression [Unknown]
  - Death [Fatal]
  - Pulmonary oedema [Unknown]
  - Fatigue [Unknown]
  - Renal failure [Unknown]
  - Pulmonary arterial hypertension [Unknown]
  - Nasal congestion [Unknown]

NARRATIVE: CASE EVENT DATE: 20160515
